FAERS Safety Report 5015719-1 (Version None)
Quarter: 2006Q2

REPORT INFORMATION
  Report Type: 
  Country: None (occurrence: None)
  Receive Date: 20060526
  Receipt Date: 20060515
  Transmission Date: 20061013
  Serious: Yes (Other)
  Sender: FDA-Public Use
  Company Number: GXKR2006FR02689

PATIENT
  Age: 38 Year
  Sex: Female

DRUGS (3)
  1. RIFAMPICIN [Suspect]
     Indication: DISSEMINATED TUBERCULOSIS
     Dosage: 9 MG/KG
  2. ETHAMBUTOL (NGX)(ETHAMBUTOL) UNKNOWN [Suspect]
     Indication: DISSEMINATED TUBERCULOSIS
     Dosage: 24 MG/KG, UNKNOWN
  3. ISONIAZID [Suspect]
     Indication: DISSEMINATED TUBERCULOSIS
     Dosage: 3 MG/KG

REACTIONS (2)
  - DRUG HYPERSENSITIVITY [None]
  - OPTIC NEURITIS [None]
